FAERS Safety Report 17021925 (Version 1)
Quarter: 2019Q4

REPORT INFORMATION
  Report Type: Spontaneous
  Country: IE (occurrence: IE)
  Receive Date: 20191112
  Receipt Date: 20191112
  Transmission Date: 20200122
  Serious: No
  Sender: FDA-Public Use
  Company Number: IE-JAZZ-2019-IE-013178

PATIENT
  Age: 5 Year

DRUGS (1)
  1. XYREM [Suspect]
     Active Substance: SODIUM OXYBATE
     Indication: HEMIPLEGIA
     Route: 048

REACTIONS (2)
  - Intentional product use issue [Unknown]
  - Product use issue [Unknown]
